FAERS Safety Report 5402972-5 (Version None)
Quarter: 2007Q3

REPORT INFORMATION
  Report Type: 
  Country: None (occurrence: None)
  Receive Date: 20070801
  Receipt Date: 20070731
  Transmission Date: 20080115
  Serious: Yes (Life-Threatening, Other)
  Sender: FDA-Public Use
  Company Number: US-BRISTOL-MYERS SQUIBB COMPANY-13863543

PATIENT
  Sex: Male
  Weight: 141 kg

DRUGS (7)
  1. DEFINITY [Suspect]
     Indication: CARDIAC STRESS TEST
     Dosage: DILUTED IN 8 CC OF NORMAL SALINE; GIVEN IN 3 INCREMENTS: 2CC, 0.5CC, 0.7CC
     Route: 040
  2. DOBUTAMINE HCL [Suspect]
     Indication: CARDIAC STRESS TEST
     Route: 042
  3. ATROPINE [Suspect]
     Indication: CARDIAC STRESS TEST
     Route: 040
  4. LOPRESSOR [Suspect]
     Indication: BLOOD PRESSURE INCREASED
     Route: 042
  5. LOPRESSOR [Suspect]
     Indication: HEADACHE
     Route: 042
  6. INDERAL [Concomitant]
  7. NEXIUM [Concomitant]

REACTIONS (4)
  - BLOOD PRESSURE INCREASED [None]
  - CONVULSION [None]
  - HEADACHE [None]
  - RESPIRATORY ARREST [None]
